FAERS Safety Report 23655903 (Version 1)
Quarter: 2024Q1

REPORT INFORMATION
  Report Type: Spontaneous
  Country: PT (occurrence: PT)
  Receive Date: 20240321
  Receipt Date: 20240321
  Transmission Date: 20240410
  Serious: Yes (Hospitalization)
  Sender: FDA-Public Use
  Company Number: PT-MACLEODS PHARMACEUTICALS US LTD-MAC2024046392

PATIENT

DRUGS (2)
  1. OLMESARTAN [Suspect]
     Active Substance: OLMESARTAN
     Indication: Essential hypertension
     Dosage: 20 MILLIGRAM, QD
     Route: 065
  2. OLMESARTAN [Suspect]
     Active Substance: OLMESARTAN
     Indication: Hypertensive heart disease

REACTIONS (4)
  - Acidosis hyperchloraemic [Recovering/Resolving]
  - Hypokalaemia [Recovering/Resolving]
  - Gastrointestinal disorder [Recovered/Resolved]
  - Acute kidney injury [Recovering/Resolving]
